FAERS Safety Report 8312534-8 (Version None)
Quarter: 2012Q2

REPORT INFORMATION
  Report Type: 
  Country: None (occurrence: None)
  Receive Date: 20120425
  Receipt Date: 20120417
  Transmission Date: 20120825
  Serious: Yes (Death, Hospitalization, Other)
  Sender: FDA-Public Use
  Company Number: JP-BRISTOL-MYERS SQUIBB COMPANY-14783922

PATIENT
  Age: 64 Year
  Sex: Female
  Weight: 55 kg

DRUGS (25)
  1. TAURINE [Concomitant]
     Dosage: GRAN
     Route: 048
     Dates: start: 20090418, end: 20090821
  2. SODIUM CHLORIDE [Concomitant]
     Dosage: 1 DOSAGE FORM=1 A 10%
     Route: 042
     Dates: start: 20090611, end: 20090821
  3. FUROSEMIDE [Concomitant]
     Route: 048
     Dates: start: 20090710, end: 20090821
  4. CAPSAICIN [Concomitant]
     Dosage: ONT
     Route: 061
     Dates: start: 20090630, end: 20090821
  5. URSODIOL [Concomitant]
     Route: 048
     Dates: start: 20090401, end: 20090821
  6. MECOBALAMIN [Concomitant]
     Route: 048
     Dates: start: 20090510, end: 20090821
  7. FAMOTIDINE [Concomitant]
     Dosage: TAB
     Route: 048
     Dates: start: 20090307, end: 20090821
  8. THIAMINE HCL [Concomitant]
     Dosage: INJ
     Route: 042
     Dates: start: 20090523, end: 20090821
  9. GRANISETRON  HCL [Concomitant]
     Route: 048
     Dates: start: 20090603, end: 20090821
  10. MAGNESIUM OXIDE [Concomitant]
     Dosage: TAB
     Route: 048
     Dates: start: 20090314, end: 20090821
  11. IRSOGLADINE MALEATE [Concomitant]
     Dosage: TAB
     Route: 048
     Dates: start: 20090307, end: 20090821
  12. ADENOSINE TRIPHOSPHATE DISODIUM [Concomitant]
     Route: 048
     Dates: start: 20090623, end: 20090821
  13. OXYCODONE HCL [Concomitant]
     Dosage: TAB, GRAN 5 MG AS NEEDED 23MAY09 INJ,IV:5MG/DAY:20MAY09-21AUG09
     Route: 048
     Dates: start: 20090520, end: 20090821
  14. CEFOZOPRAN HCL [Concomitant]
     Dosage: INJ
     Route: 042
     Dates: start: 20090719, end: 20090821
  15. AMITRIPTYLINE HCL [Concomitant]
     Dosage: TAB
     Route: 048
     Dates: start: 20090516, end: 20090821
  16. GABAPENTIN [Concomitant]
     Dosage: TAB
     Route: 048
     Dates: start: 20090516, end: 20090821
  17. SPIRONOLACTONE [Concomitant]
     Dosage: TAB
     Route: 048
     Dates: start: 20090526, end: 20090821
  18. POVIDONE-IODINE (FORMULA 47) [Concomitant]
     Dosage: SOL GARGLE AS APPROPRIATE
     Route: 050
     Dates: start: 20090307, end: 20090821
  19. OFLOXACIN [Concomitant]
     Dosage: SOL 0.3% 5 ML
     Route: 061
     Dates: start: 20090624, end: 20090821
  20. DOGMATYL [Concomitant]
     Dates: start: 20090620
  21. METOCLOPRAMIDE HCL INJ [Concomitant]
     Route: 042
     Dates: start: 20090603, end: 20090821
  22. LACTOBACILLUS CASEI [Concomitant]
     Dosage: GRAN
     Route: 048
     Dates: start: 20090513, end: 20090821
  23. SPRYCEL [Suspect]
     Indication: ACUTE LYMPHOCYTIC LEUKAEMIA
     Dosage: 70MG:22JUN09-CONT 50MG:10JUL09-19JUL09;23JUL09-CONT 40MG:31JUL09-21AUG09
     Route: 048
     Dates: start: 20090622
  24. SULPIRIDE [Concomitant]
     Route: 048
     Dates: start: 20090623, end: 20090821
  25. AMMONIUM GLYCYRRHIZINATE [Concomitant]
     Dosage: INJ MONOAMMONIUM GLYCYRRHIZINATE AMINOACETIC ACID L-CYSTEINE HYDROCHLORIDE HYDRATE
     Route: 042
     Dates: start: 20090626, end: 20090821

REACTIONS (6)
  - PLEURISY [None]
  - SEPSIS [None]
  - SEPTIC SHOCK [None]
  - ASPARTATE AMINOTRANSFERASE INCREASED [None]
  - NEOPLASM MALIGNANT [None]
  - ALANINE AMINOTRANSFERASE INCREASED [None]
